FAERS Safety Report 5083873-1 (Version None)
Quarter: 2006Q3

REPORT INFORMATION
  Report Type: 
  Country: None (occurrence: None)
  Receive Date: 20060727
  Receipt Date: 20060419
  Transmission Date: 20061208
  Serious: Yes (Other)
  Sender: FDA-Public Use
  Company Number: 2006053440

PATIENT
  Age: 84 Year
  Sex: Male
  Weight: 79.3795 kg

DRUGS (7)
  1. LYRICA [Suspect]
     Indication: NEUROPATHY PERIPHERAL
     Dosage: 75 MG (25 MG, 3 IN 1 D), ORAL
     Route: 048
     Dates: start: 20060301, end: 20060405
  2. WARFARIN SODIUM [Concomitant]
  3. ZOCOR [Concomitant]
  4. VERAPAMIL [Concomitant]
  5. ALTACE [Concomitant]
  6. PROSCAR [Concomitant]
  7. TERAZOSIN (TERAZOSIN) [Concomitant]

REACTIONS (2)
  - HAEMOGLOBIN DECREASED [None]
  - PLATELET COUNT DECREASED [None]
